FAERS Safety Report 5678811-4 (Version None)
Quarter: 2008Q1

REPORT INFORMATION
  Report Type: 
  Country: None (occurrence: None)
  Receive Date: 20080324
  Receipt Date: 20080324
  Transmission Date: 20080703
  Serious: Yes (Other)
  Sender: FDA-Public Use
  Company Number: None

PATIENT
  Age: 24 Year
  Sex: Female
  Weight: 60.782 kg

DRUGS (1)
  1. LUPRON [Suspect]
     Indication: ENDOMETRIOSIS
     Dosage: 3.75 MG MONTHLY IM
     Route: 030
     Dates: start: 20070401, end: 20070601

REACTIONS (6)
  - BONE PAIN [None]
  - HAEMORRHAGE [None]
  - HYPOTHALAMO-PITUITARY DISORDER [None]
  - MASS [None]
  - MYALGIA [None]
  - UNEVALUABLE EVENT [None]
